FAERS Safety Report 7672114-4 (Version None)
Quarter: 2011Q3

REPORT INFORMATION
  Report Type: 
  Country: None (occurrence: None)
  Receive Date: 20110809
  Receipt Date: 20110802
  Transmission Date: 20111222
  Serious: Yes (Death, Hospitalization, Other)
  Sender: FDA-Public Use
  Company Number: PHHO2010JP02049

PATIENT
  Sex: Male
  Weight: 70 kg

DRUGS (23)
  1. COMELIAN [Concomitant]
     Indication: DIABETIC NEPHROPATHY
  2. PRORENAL [Concomitant]
     Indication: ARTERIOSCLEROSIS
  3. MICARDIS [Concomitant]
     Indication: HYPERTENSION
  4. KETOPROFEN [Concomitant]
     Indication: OSTEOARTHRITIS
  5. LAMISIL [Concomitant]
     Indication: TINEA PEDIS
  6. FENTANYL [Concomitant]
     Indication: PAIN
     Dosage: 4.2 MG, TID
     Dates: start: 20110501
  7. OMEPRAZOLE [Concomitant]
     Indication: GASTRITIS
  8. PLETAL [Concomitant]
     Indication: ARTERIOSCLEROSIS
  9. TORSEMIDE [Concomitant]
     Indication: HYPERTENSION
  10. PITAVASTATIN [Concomitant]
  11. MIYA-BM [Concomitant]
     Indication: CONSTIPATION
  12. KARY UNI [Concomitant]
     Indication: CATARACT
  13. URIEF [Concomitant]
  14. NASONEX [Concomitant]
  15. URINORM [Concomitant]
     Indication: HYPERURICAEMIA
  16. XALATAN [Concomitant]
     Indication: OCULAR HYPERTENSION
     Dosage: UNK
  17. CERNILTON [Concomitant]
  18. ALISKIREN [Suspect]
     Indication: CARDIOVASCULAR DISORDER
     Dosage: UNK
     Route: 048
     Dates: start: 20090105, end: 20110416
  19. AMARYL [Concomitant]
     Indication: DIABETES MELLITUS
  20. ATELEC [Concomitant]
     Indication: HYPERTENSION
  21. FLIVAS [Concomitant]
     Indication: BENIGN PROSTATIC HYPERPLASIA
  22. PURSENNID [Concomitant]
  23. POVIDONE IODINE [Concomitant]
     Indication: PROPHYLAXIS

REACTIONS (6)
  - METASTASES TO CENTRAL NERVOUS SYSTEM [None]
  - RETROGRADE EJACULATION [None]
  - PROSTATE CANCER [None]
  - SMALL CELL LUNG CANCER STAGE UNSPECIFIED [None]
  - CONCOMITANT DISEASE PROGRESSION [None]
  - MUSCULAR WEAKNESS [None]
